FAERS Safety Report 9551256 (Version 1)
Quarter: 2013Q3

REPORT INFORMATION
  Report Type: Report from Study
  Country: US (occurrence: US)
  Receive Date: 20130925
  Receipt Date: 20130925
  Transmission Date: 20140515
  Serious: No
  Sender: FDA-Public Use
  Company Number: US-ASTRAZENECA-2013SE69732

PATIENT
  Age: 52 Year
  Sex: Female
  Weight: 84.8 kg

DRUGS (8)
  1. NEXIUM [Suspect]
     Indication: GASTROOESOPHAGEAL REFLUX DISEASE
     Route: 048
     Dates: start: 2010, end: 201308
  2. OXYMORPHONE [Concomitant]
     Indication: PAIN
     Route: 048
     Dates: start: 201303
  3. GABAPENTIN [Concomitant]
     Indication: HERPES ZOSTER
     Route: 048
  4. HYDROXYZINE [Concomitant]
     Indication: PRURITUS
     Route: 048
     Dates: start: 201308
  5. TOPAMAX [Concomitant]
     Indication: MIGRAINE
     Route: 048
     Dates: start: 2007
  6. AMLODIPINE [Concomitant]
     Indication: MIGRAINE
     Route: 048
     Dates: start: 2007
  7. CYMBALTA [Concomitant]
     Indication: DEPRESSION
     Route: 048
     Dates: start: 2007
  8. FENOFIBRATE [Concomitant]
     Indication: BLOOD CHOLESTEROL
     Route: 048
     Dates: start: 2011

REACTIONS (7)
  - Gastrooesophageal reflux disease [Not Recovered/Not Resolved]
  - Sleep disorder due to a general medical condition [Not Recovered/Not Resolved]
  - Nasopharyngitis [Not Recovered/Not Resolved]
  - Back disorder [Not Recovered/Not Resolved]
  - Arthropathy [Not Recovered/Not Resolved]
  - Herpes zoster [Recovered/Resolved]
  - Drug dose omission [Not Recovered/Not Resolved]
